FAERS Safety Report 4606312-0 (Version None)
Quarter: 2005Q2

REPORT INFORMATION
  Report Type: 
  Country: None (occurrence: None)
  Receive Date: 20050303
  Receipt Date: 20041228
  Transmission Date: 20051028
  Serious: No
  Sender: FDA-Public Use
  Company Number: 200421231BWH

PATIENT
  Age: 80 Year
  Sex: Male

DRUGS (10)
  1. LEVITRA [Suspect]
     Dosage: 20 MG, TOTAL DAILY, ORAL
     Route: 048
  2. ZOCOR [Concomitant]
  3. ECOTRIN [Concomitant]
  4. PAPAVERINE [Concomitant]
  5. MULTIVITAMIN [Concomitant]
  6. FOLIC ACID [Concomitant]
  7. VITAMIN B COMPLEX CAP [Concomitant]
  8. ARICEPT [Concomitant]
  9. NAMENDA [Concomitant]
  10. QUININE SULFATE [Concomitant]

REACTIONS (1)
  - DRUG INEFFECTIVE [None]
